FAERS Safety Report 5218380-6 (Version None)
Quarter: 2007Q1

REPORT INFORMATION
  Report Type: 
  Country: None (occurrence: None)
  Receive Date: 20070124
  Receipt Date: 20070112
  Transmission Date: 20070707
  Serious: Yes (Other)
  Sender: FDA-Public Use
  Company Number: FR-PFIZER INC-2007004450

PATIENT
  Sex: Female

DRUGS (2)
  1. XALATAN [Suspect]
  2. ALPHAGAN [Suspect]
     Indication: INTRAOCULAR PRESSURE INCREASED

REACTIONS (2)
  - DRUG INTOLERANCE [None]
  - INTRAOCULAR PRESSURE INCREASED [None]
